FAERS Safety Report 13513334 (Version 2)
Quarter: 2017Q2

REPORT INFORMATION
  Report Type: Report from Study
  Country: FR (occurrence: FR)
  Receive Date: 20170504
  Receipt Date: 20170518
  Transmission Date: 20170830
  Serious: Yes (Hospitalization)
  Sender: FDA-Public Use
  Company Number: FR-BRISTOL-MYERS SQUIBB COMPANY-BMS-2017-036768

PATIENT
  Age: 64 Year
  Sex: Male
  Weight: 83 kg

DRUGS (4)
  1. NIVOLUMAB [Suspect]
     Active Substance: NIVOLUMAB
     Indication: GLIOBLASTOMA
     Dosage: 240 MG, Q2WK
     Route: 042
     Dates: start: 20161223, end: 20170330
  2. KEPPRA [Concomitant]
     Active Substance: LEVETIRACETAM
     Indication: PREMEDICATION
     Dosage: 1000 MG, UNK
     Route: 065
     Dates: start: 20161111
  3. NIVOLUMAB [Suspect]
     Active Substance: NIVOLUMAB
     Indication: PRODUCT USED FOR UNKNOWN INDICATION
     Dosage: UNK
     Route: 065
     Dates: start: 20170413
  4. TADENAN [Concomitant]
     Active Substance: PYGEUM
     Indication: PREMEDICATION
     Dosage: 100 MG, UNK
     Route: 065

REACTIONS (1)
  - Hyperglycaemia [Recovered/Resolved]

NARRATIVE: CASE EVENT DATE: 20170425
